FAERS Safety Report 23995174 (Version 1)
Quarter: 2024Q2

REPORT INFORMATION
  Report Type: Spontaneous
  Country: US (occurrence: None)
  Receive Date: 20240619
  Receipt Date: 20240619
  Transmission Date: 20240716
  Serious: No
  Sender: FDA-Public Use
  Company Number: None

PATIENT
  Age: 71 Year
  Sex: Female

DRUGS (1)
  1. HUMIRA [Suspect]
     Active Substance: ADALIMUMAB
     Indication: Psoriasis
     Dosage: INJECTE 80MG (2 SYRINGES) SUBCUTANEOUSLY  ON DAY 1,  40MG (1 SYRINGE)  ON DAY 8 THE 40MG EVE
     Route: 058
     Dates: start: 202404

REACTIONS (2)
  - Hospitalisation [None]
  - Therapy interrupted [None]
